FAERS Safety Report 21025272 (Version 3)
Quarter: 2023Q2

REPORT INFORMATION
  Report Type: Spontaneous
  Country: JP (occurrence: JP)
  Receive Date: 20220630
  Receipt Date: 20230525
  Transmission Date: 20230721
  Serious: Yes (Other)
  Sender: FDA-Public Use
  Company Number: JP-NOVARTISPH-NVSJ2022JP093191

PATIENT
  Age: 15 Year
  Sex: Female
  Weight: 48 kg

DRUGS (2)
  1. GLYCOPYRROLATE\INDACATEROL\MOMETASONE FUROATE [Suspect]
     Active Substance: GLYCOPYRROLATE\INDACATEROL\MOMETASONE FUROATE
     Indication: Asthma
     Dosage: 1DF:INDACATEROL150UG,GLYCOPYRRONIUM50UG,MOMETASONE FUROATE160UG 1 INHALATIONS, QD
     Dates: start: 20211222, end: 20220627
  2. AMBROXOL [Suspect]
     Active Substance: AMBROXOL
     Indication: Asthma
     Dosage: 15 MG, QD
     Route: 048
     Dates: start: 20220126, end: 20220627

REACTIONS (2)
  - Eosinophilic pneumonia [Unknown]
  - Productive cough [Unknown]

NARRATIVE: CASE EVENT DATE: 20220511
